FAERS Safety Report 4899178-5 (Version None)
Quarter: 2006Q1

REPORT INFORMATION
  Report Type: 
  Country: None (occurrence: None)
  Receive Date: 20060130
  Receipt Date: 20060116
  Transmission Date: 20060701
  Serious: Yes (Death, Other)
  Sender: FDA-Public Use
  Company Number: 2005162626

PATIENT
  Age: 75 Year
  Sex: Male
  Weight: 56.7 kg

DRUGS (19)
  1. VFEND [Suspect]
     Indication: FUNGAL INFECTION
     Dosage: 400 MG INTRAVENOUS
     Route: 042
     Dates: start: 20051123, end: 20051128
  2. HABEKACIN (ARBEKACIN) [Suspect]
     Indication: BACTERIAL INFECTION
     Dosage: 100 MG INTRAVENOUS
     Route: 042
     Dates: start: 20051123
  3. TARGOCID [Suspect]
     Indication: STAPHYLOCOCCAL INFECTION
     Dosage: 100 MG INTRAVENOUS
     Route: 042
     Dates: start: 20051014, end: 20051211
  4. GLUCOSE (GLUCOSE) [Concomitant]
  5. STRONG NEO-MINOPHAGEN C (AMINOACETIC ACID, CYSTEINE, GLYCYRRHIZIC ACID [Concomitant]
  6. AMIYU (AMINO ACIDS NOS) [Concomitant]
  7. TATHION (GLUTATHIONE) [Concomitant]
  8. KAYTWO N (MENATETRENONE) [Concomitant]
  9. MULTAMIN (VITAMINS NOS) [Concomitant]
  10. ELEMENMIC  (MINERALS NOS) [Concomitant]
  11. FOY (GABEXATE MESILATE) [Concomitant]
  12. MIRACLID (ULINASTATIN) [Concomitant]
  13. SULPERAZON (SULBACTAM/CEFOPERAZONE) (CEFOPERAZONE SODIUM, SULBACTAM SO [Concomitant]
  14. AMIKACIN (AMIKACIN SULFATE) (AMIKACIN) [Concomitant]
  15. OMEPRAL (OMEPRAZOLE) (OMEPRAZOLE) [Concomitant]
  16. VANCOMYCIN (VANCOMYCIN HYDROCHLORIDE) (VANCOMYCIN) [Concomitant]
  17. MONILAC (LACTULOSE) (LACTULOSE) [Concomitant]
  18. FRESH-FROZEN HUMAN PLASMA (FRESH-FROZEN HUMAN PLASMA) (PLASMA) [Concomitant]
  19. MODACIN (CEFTAZIDIME) (CEFTAZIDIME) [Concomitant]

REACTIONS (3)
  - HEPATIC FAILURE [None]
  - PANCREATITIS [None]
  - RENAL FAILURE [None]
